FAERS Safety Report 5430911-X (Version None)
Quarter: 2007Q3

REPORT INFORMATION
  Report Type: 
  Country: None (occurrence: None)
  Receive Date: 20070828
  Receipt Date: 20070813
  Transmission Date: 20080115
  Serious: Yes (Death, Hospitalization, Other)
  Sender: FDA-Public Use
  Company Number: 2007RR-09257

PATIENT
  Age: 65 Year
  Sex: Female

DRUGS (5)
  1. CLARITHROMICINA RANBAXY 250MG/5ML GRANULATO PER SOSPENSIONE ORALE(CLAR [Suspect]
  2. CEFTAZIDIME PENTAHYDRATE [Suspect]
     Dosage: 2 G, TID, INTRAVENOUS
     Route: 042
  3. METHYLPREDNISOLONE [Concomitant]
  4. IMIPENEM (IMIPENEM) [Concomitant]
  5. AMIKACIN SULPHATE (AMIKACIN SULPHATE) [Concomitant]

REACTIONS (6)
  - APLASTIC ANAEMIA [None]
  - BIOPSY BONE MARROW ABNORMAL [None]
  - CARDIO-RESPIRATORY ARREST [None]
  - GENERAL PHYSICAL HEALTH DETERIORATION [None]
  - PANCYTOPENIA [None]
  - TOXIC EPIDERMAL NECROLYSIS [None]
